FAERS Safety Report 9990954 (Version 1)
Quarter: 2014Q1

REPORT INFORMATION
  Report Type: Report from Study
  Country: US (occurrence: US)
  Receive Date: 20140310
  Receipt Date: 20140310
  Transmission Date: 20141002
  Serious: No
  Sender: FDA-Public Use
  Company Number: US-ABBVIE-13P-163-1132820-00

PATIENT
  Age: 17 Year
  Sex: Male

DRUGS (11)
  1. HUMIRA [Suspect]
     Indication: COLITIS ULCERATIVE
     Dates: start: 201302
  2. HUMIRA [Suspect]
  3. HUMIRA [Suspect]
  4. APRISO [Concomitant]
     Indication: PRODUCT USED FOR UNKNOWN INDICATION
  5. METRONIDAZOLE [Concomitant]
     Indication: PRODUCT USED FOR UNKNOWN INDICATION
  6. UCERIS [Concomitant]
     Indication: PRODUCT USED FOR UNKNOWN INDICATION
  7. FISH OIL [Concomitant]
     Indication: COLITIS ULCERATIVE
  8. VIACELL #3 DOUBLE STRENGTH [Concomitant]
     Indication: COLITIS ULCERATIVE
     Dosage: 1 PACKET TWICE A DAY
  9. FAMOTIDINE [Concomitant]
     Indication: EPIGASTRIC DISCOMFORT
  10. PREDNISONE [Concomitant]
     Indication: PRODUCT USED FOR UNKNOWN INDICATION
     Dosage: 40-50 MG DAILY
  11. PREDNISONE [Concomitant]
     Dosage: 2.5 MG DAILY

REACTIONS (2)
  - Colitis ulcerative [Recovered/Resolved]
  - Injection site pain [Recovered/Resolved]
